FAERS Safety Report 21889738 (Version 1)
Quarter: 2023Q1

REPORT INFORMATION
  Report Type: Spontaneous
  Country: US (occurrence: None)
  Receive Date: 20230120
  Receipt Date: 20230120
  Transmission Date: 20230418
  Serious: Yes (Other)
  Sender: FDA-Public Use
  Company Number: US-MICRO LABS LIMITED-ML2023-00221

PATIENT
  Age: 22 Year
  Sex: Female

DRUGS (6)
  1. ACETAZOLAMIDE [Suspect]
     Active Substance: ACETAZOLAMIDE
     Indication: Idiopathic intracranial hypertension
  2. ACETAZOLAMIDE [Suspect]
     Active Substance: ACETAZOLAMIDE
     Dosage: ADJUSTED REGIMEN TO 1 WEEK ON, 1 WEEK OFF ACETAZOLAMIDE (500 MG TWICE A DAY)
  3. TOPIRAMATE [Concomitant]
     Active Substance: TOPIRAMATE
     Indication: Idiopathic intracranial hypertension
  4. TOPIRAMATE [Concomitant]
     Active Substance: TOPIRAMATE
     Dosage: INCREASED
  5. HYDROXYUREA [Concomitant]
     Active Substance: HYDROXYUREA
     Dosage: DAILY
  6. FOLIC ACID [Concomitant]
     Active Substance: FOLIC ACID
     Dosage: DAILY

REACTIONS (1)
  - Sickle cell anaemia with crisis [Unknown]
